FAERS Safety Report 18783133 (Version 1)
Quarter: 2021Q1

REPORT INFORMATION
  Report Type: Spontaneous
  Country: CA (occurrence: CA)
  Receive Date: 20210125
  Receipt Date: 20210125
  Transmission Date: 20210419
  Serious: Yes (Hospitalization, Other)
  Sender: FDA-Public Use
  Company Number: CA-JNJFOC-20210133538

PATIENT
  Age: 75 Year
  Sex: Male
  Weight: 85 kg

DRUGS (6)
  1. REMICADE [Suspect]
     Active Substance: INFLIXIMAB
     Indication: CROHN^S DISEASE
     Route: 042
  2. CHOLESTYRAMINE. [Concomitant]
     Active Substance: CHOLESTYRAMINE
     Indication: CONGENITAL CYSTIC KIDNEY DISEASE
  3. ELIQUIS [Concomitant]
     Active Substance: APIXABAN
     Indication: ATRIAL FIBRILLATION
  4. CHOLESTYRAMINE. [Concomitant]
     Active Substance: CHOLESTYRAMINE
     Indication: GLAUCOMA
  5. METHOTREXATE. [Concomitant]
     Active Substance: METHOTREXATE
     Route: 058
  6. XALATAN [Concomitant]
     Active Substance: LATANOPROST
     Indication: GLAUCOMA

REACTIONS (6)
  - Inappropriate schedule of product administration [Unknown]
  - Condition aggravated [Unknown]
  - Off label use [Unknown]
  - Intestinal obstruction [Unknown]
  - Intentional product use issue [Unknown]
  - Malaise [Unknown]
